FAERS Safety Report 4753277-7 (Version None)
Quarter: 2005Q3

REPORT INFORMATION
  Report Type: 
  Country: None (occurrence: None)
  Receive Date: 20050826
  Receipt Date: 20050816
  Transmission Date: 20060218
  Serious: Yes (Hospitalization)
  Sender: FDA-Public Use
  Company Number: ZA-BRISTOL-MYERS SQUIBB COMPANY-13086764

PATIENT
  Age: 42 Year
  Sex: Male

DRUGS (2)
  1. EFAVIRENZ [Suspect]
     Indication: HIV INFECTION
     Route: 048
     Dates: start: 20031209, end: 20031212
  2. COMBIVIR [Suspect]
     Indication: HIV INFECTION
     Dosage: LAMIVUDINE 300 MG/ZIDOVUDINE 150 MG
     Route: 048
     Dates: start: 20031209, end: 20040516

REACTIONS (1)
  - PSYCHOTIC DISORDER [None]
